FAERS Safety Report 4963223-9 (Version None)
Quarter: 2006Q2

REPORT INFORMATION
  Report Type: 
  Country: None (occurrence: None)
  Receive Date: 20060405
  Receipt Date: 20051214
  Transmission Date: 20061013
  Serious: Yes (Hospitalization, Disabling)
  Sender: FDA-Public Use
  Company Number: US-MERCK-0512USA02257

PATIENT
  Age: 68 Year
  Sex: Male
  Weight: 91 kg

DRUGS (13)
  1. VIOXX [Suspect]
     Indication: OSTEOARTHRITIS
     Route: 048
     Dates: start: 20000201, end: 20040901
  2. VIOXX [Suspect]
     Route: 048
     Dates: start: 20000201, end: 20040901
  3. ALBUTEROL [Concomitant]
     Indication: ASTHMA
     Route: 065
  4. FLOVENT [Concomitant]
     Indication: ASTHMA
     Route: 065
  5. ZOCOR [Concomitant]
     Indication: BLOOD CHOLESTEROL
     Route: 065
     Dates: end: 20040101
  6. PREVACID [Concomitant]
     Indication: GASTROOESOPHAGEAL REFLUX DISEASE
     Route: 065
  7. AVAPRO [Concomitant]
     Indication: BLOOD PRESSURE
     Route: 065
     Dates: end: 20030101
  8. THEOPHYLLINE [Concomitant]
     Indication: ASTHMA
     Route: 065
  9. LODINE [Concomitant]
     Indication: OSTEOARTHRITIS
     Route: 065
  10. PROTONIX [Concomitant]
     Indication: GASTROOESOPHAGEAL REFLUX DISEASE
     Route: 065
  11. OXYCODONE [Concomitant]
     Indication: PAIN
     Route: 065
  12. ULTRACET [Concomitant]
     Indication: PAIN
     Route: 065
  13. TYLENOL (CAPLET) [Concomitant]
     Indication: ARTHRITIS
     Route: 065

REACTIONS (21)
  - ACTIVITIES OF DAILY LIVING IMPAIRED [None]
  - ANXIETY [None]
  - ARTERIAL OCCLUSIVE DISEASE [None]
  - ASTHENIA [None]
  - ASTHMA [None]
  - BLOOD CHOLESTEROL INCREASED [None]
  - BLOOD TRIGLYCERIDES INCREASED [None]
  - CHEST PAIN [None]
  - DEPRESSION [None]
  - EAR DISORDER [None]
  - FEAR [None]
  - GASTROOESOPHAGEAL REFLUX DISEASE [None]
  - HEAD INJURY [None]
  - INTERNAL INJURY [None]
  - INTERVERTEBRAL DISC PROTRUSION [None]
  - LACERATION [None]
  - LIMB INJURY [None]
  - MUSCULOSKELETAL STIFFNESS [None]
  - MYOCARDIAL INFARCTION [None]
  - MYOCARDIAL ISCHAEMIA [None]
  - NERVOUS SYSTEM DISORDER [None]
